FAERS Safety Report 24943695 (Version 1)
Quarter: 2025Q1

REPORT INFORMATION
  Report Type: Spontaneous
  Country: FR (occurrence: FR)
  Receive Date: 20250207
  Receipt Date: 20250207
  Transmission Date: 20250409
  Serious: Yes (Death)
  Sender: AMGEN
  Company Number: FR-AMGEN-FRASP2025023821

PATIENT
  Age: 74 Year

DRUGS (10)
  1. BLINATUMOMAB [Suspect]
     Active Substance: BLINATUMOMAB
     Indication: B precursor type acute leukaemia
     Dosage: 9 MICROGRAM, QD, FOR 7 DAYS
     Route: 040
  2. BLINATUMOMAB [Suspect]
     Active Substance: BLINATUMOMAB
     Dosage: 28 MICROGRAM, QD, FOR 21 DAYS
     Route: 040
  3. CYCLOPHOSPHAMIDE [Concomitant]
     Active Substance: CYCLOPHOSPHAMIDE
     Indication: B precursor type acute leukaemia
     Dosage: 300 MILLIGRAM/SQ. METER, BID, D1-D3
  4. VINCRISTINE [Concomitant]
     Active Substance: VINCRISTINE
     Indication: B precursor type acute leukaemia
  5. DOXORUBICIN [Concomitant]
     Active Substance: DOXORUBICIN
     Indication: B precursor type acute leukaemia
     Dosage: 25 MILLIGRAM/SQ. METER, BID, CONTINUOUS INFUSION D4
  6. DEXAMETHASONE [Concomitant]
     Active Substance: DEXAMETHASONE
     Indication: B precursor type acute leukaemia
     Route: 048
  7. METHOTREXATE [Concomitant]
     Active Substance: METHOTREXATE
     Indication: B precursor type acute leukaemia
     Route: 029
  8. CYTARABINE [Concomitant]
     Active Substance: CYTARABINE
     Indication: B precursor type acute leukaemia
  9. DEPO-MEDROL [Concomitant]
     Active Substance: METHYLPREDNISOLONE ACETATE
     Indication: B precursor type acute leukaemia
  10. PONATINIB [Concomitant]
     Active Substance: PONATINIB
     Indication: B precursor type acute leukaemia
     Dosage: 30 MILLIGRAM, QD

REACTIONS (1)
  - Cardiac failure acute [Fatal]
